FAERS Safety Report 18229021 (Version 4)
Quarter: 2021Q1

REPORT INFORMATION
  Report Type: Spontaneous
  Country: US (occurrence: US)
  Receive Date: 20200903
  Receipt Date: 20210319
  Transmission Date: 20210419
  Serious: Yes (Other)
  Sender: FDA-Public Use
  Company Number: US-GILEAD-2020-0492159

PATIENT
  Age: 48 Year
  Sex: Male
  Weight: 81.63 kg

DRUGS (14)
  1. COMBIVIR [Concomitant]
     Active Substance: LAMIVUDINE\ZIDOVUDINE
  2. COMPLERA [Suspect]
     Active Substance: EMTRICITABINE\RILPIVIRINE HYDROCHLORIDE\TENOFOVIR DISOPROXIL FUMARATE
     Indication: HIV INFECTION
     Dosage: UNK
     Route: 048
     Dates: start: 201502, end: 201605
  3. KALETRA [Concomitant]
     Active Substance: LOPINAVIR\RITONAVIR
  4. BACTRIM [Concomitant]
     Active Substance: SULFAMETHOXAZOLE\TRIMETHOPRIM
  5. VITAMINS NOS [Concomitant]
     Active Substance: VITAMINS
  6. HARVONI [Concomitant]
     Active Substance: LEDIPASVIR\SOFOSBUVIR
  7. SOVALDI [Concomitant]
     Active Substance: SOFOSBUVIR
  8. RIBAVARIN [Concomitant]
     Active Substance: RIBAVIRIN
  9. HYDROCODONE [Concomitant]
     Active Substance: HYDROCODONE
  10. INTERFERON [Concomitant]
     Active Substance: INTERFERON
  11. TELAPREVIR [Concomitant]
     Active Substance: TELAPREVIR
  12. ATORVASTATIN [Concomitant]
     Active Substance: ATORVASTATIN
  13. ATRIPLA [Suspect]
     Active Substance: EFAVIRENZ\EMTRICITABINE\TENOFOVIR DISOPROXIL FUMARATE
     Indication: HIV INFECTION
     Dosage: UNK
     Route: 048
     Dates: start: 201109, end: 201502
  14. ODEFSEY [Concomitant]
     Active Substance: EMTRICITABINE\RILPIVIRINE HYDROCHLORIDE\TENOFOVIR ALAFENAMIDE FUMARATE

REACTIONS (11)
  - Hand fracture [Recovered/Resolved]
  - Pain [Unknown]
  - Multiple fractures [Not Recovered/Not Resolved]
  - Rib fracture [Recovered/Resolved]
  - Wrist fracture [Recovered/Resolved]
  - Emotional distress [Unknown]
  - Bone density decreased [Not Recovered/Not Resolved]
  - Anhedonia [Unknown]
  - Hand fracture [Recovered/Resolved]
  - Anxiety [Unknown]
  - Osteopenia [Not Recovered/Not Resolved]

NARRATIVE: CASE EVENT DATE: 20130720
